FAERS Safety Report 8583417-3 (Version None)
Quarter: 2012Q3

REPORT INFORMATION
  Report Type: 
  Country: None (occurrence: None)
  Receive Date: 20120809
  Receipt Date: 20120726
  Transmission Date: 20120928
  Serious: Yes (Other)
  Sender: FDA-Public Use
  Company Number: CHPA2012US016846

PATIENT
  Sex: Male

DRUGS (1)
  1. CRUEX [Suspect]
     Indication: PRURITUS
     Dosage: UNK, PRN
     Route: 061
     Dates: start: 19620101

REACTIONS (2)
  - INJURY [None]
  - DISEASE RECURRENCE [None]
